FAERS Safety Report 4703119-0 (Version None)
Quarter: 2005Q2

REPORT INFORMATION
  Report Type: 
  Country: None (occurrence: None)
  Receive Date: 20050629
  Receipt Date: 20050622
  Transmission Date: 20051028
  Serious: Yes (Death, Hospitalization)
  Sender: FDA-Public Use
  Company Number: JPKYO-S-20050011

PATIENT
  Age: 71 Year
  Sex: Male

DRUGS (6)
  1. NAVELBINE [Suspect]
     Indication: NON-SMALL CELL LUNG CANCER
     Dosage: 40MG PER DAY
     Route: 042
     Dates: start: 20050310, end: 20050310
  2. PREDONINE [Concomitant]
     Dates: start: 20041112, end: 20041112
  3. SELBEX [Concomitant]
     Dates: start: 20041112
  4. GASTER [Concomitant]
     Dates: start: 20041112
  5. ALEVIATIN [Concomitant]
     Dates: start: 20041112
  6. NAPROXEN [Concomitant]
     Dates: start: 20041112

REACTIONS (8)
  - ABDOMINAL PAIN [None]
  - HYPOXIA [None]
  - INTERSTITIAL LUNG DISEASE [None]
  - MULTI-ORGAN FAILURE [None]
  - PYREXIA [None]
  - RESPIRATORY DISTRESS [None]
  - SEPSIS [None]
  - SMALL INTESTINAL PERFORATION [None]
